FAERS Safety Report 10661508 (Version 1)
Quarter: 2014Q4

REPORT INFORMATION
  Report Type: Spontaneous
  Country: US (occurrence: None)
  Receive Date: 20141217
  Receipt Date: 20141217
  Transmission Date: 20150529
  Serious: No
  Sender: FDA-Public Use
  Company Number: None

PATIENT
  Age: 46 Year
  Sex: Male
  Weight: 100.7 kg

DRUGS (10)
  1. LANTUS SOLOSTAR [Concomitant]
     Active Substance: INSULIN GLARGINE
  2. IBUPROFEN. [Concomitant]
     Active Substance: IBUPROFEN
  3. ANDROGEL [Concomitant]
     Active Substance: TESTOSTERONE
  4. INVOKANA [Suspect]
     Active Substance: CANAGLIFLOZIN
     Indication: TYPE 2 DIABETES MELLITUS
     Dosage: 1 TABLET
     Route: 048
     Dates: start: 20140805, end: 20141121
  5. VICTOZA [Concomitant]
     Active Substance: LIRAGLUTIDE
  6. OMEPRAZOLE. [Concomitant]
     Active Substance: OMEPRAZOLE
  7. CRESTOR [Concomitant]
     Active Substance: ROSUVASTATIN CALCIUM
  8. LEVOTHYROXINE [Concomitant]
     Active Substance: LEVOTHYROXINE
  9. TRIAMTERENE. [Concomitant]
     Active Substance: TRIAMTERENE
  10. ATENOLOL. [Concomitant]
     Active Substance: ATENOLOL

REACTIONS (4)
  - Pollakiuria [None]
  - Penis disorder [None]
  - Fungal skin infection [None]
  - Skin lesion [None]

NARRATIVE: CASE EVENT DATE: 201409
